FAERS Safety Report 8770719 (Version 4)
Quarter: 2013Q1

REPORT INFORMATION
  Report Type: Report from Study
  Country: HK (occurrence: HK)
  Receive Date: 20120907
  Receipt Date: 20130321
  Transmission Date: 20140127
  Serious: Yes (Hospitalization)
  Sender: FDA-Public Use
  Company Number: HK-ROCHE-1114801

PATIENT
  Age: 28 Year
  Sex: Female
  Weight: 42 kg

DRUGS (13)
  1. BEVACIZUMAB [Suspect]
     Indication: OVARIAN CANCER
     Dosage: LAST DOSE PRIOR TO SAE: 19 JUL 2012
     Route: 042
  2. PACLITAXEL [Suspect]
     Indication: OVARIAN CANCER
     Dosage: LAST DOSE PRIOR TO SAE:07 SEP 2011
     Route: 042
     Dates: start: 20110428
  3. CARBOPLATIN [Suspect]
     Indication: OVARIAN CANCER
     Dosage: DOSE: 6 AUC, LAST DOSE PRIOR TO SAE: 07/SEP/2011
     Route: 042
     Dates: start: 20110428
  4. IMOVANE [Concomitant]
     Route: 065
     Dates: start: 20120825, end: 20120903
  5. NAPROSYN [Concomitant]
     Route: 065
     Dates: start: 20120828, end: 20120828
  6. TRAMADOL [Concomitant]
     Route: 065
     Dates: start: 20120829
  7. GABAPENTIN [Concomitant]
     Route: 065
     Dates: start: 20120718
  8. GASTEEL (HONG KONG) [Concomitant]
     Route: 065
     Dates: start: 20120823, end: 20120828
  9. NEXIUM [Concomitant]
     Route: 065
     Dates: start: 20120824
  10. AMOXICILLIN [Concomitant]
     Route: 065
     Dates: start: 20120824, end: 20120903
  11. KLACID (HONG KONG) [Concomitant]
     Route: 065
     Dates: start: 20120824, end: 20120903
  12. PIRITON [Concomitant]
     Route: 065
     Dates: start: 20120903, end: 20120904
  13. HOLOPON [Concomitant]
     Route: 065
     Dates: start: 20120904

REACTIONS (1)
  - Oesophageal stenosis [Recovered/Resolved with Sequelae]
